FAERS Safety Report 9239965 (Version 1)
Quarter: 2013Q2

REPORT INFORMATION
  Report Type: Spontaneous
  Country: US (occurrence: US)
  Receive Date: 20130418
  Receipt Date: 20130418
  Transmission Date: 20140414
  Serious: No
  Sender: FDA-Public Use
  Company Number: US-SANOFI-AVENTIS-2012SA026738

PATIENT
  Age: 51 Year
  Sex: Male

DRUGS (1)
  1. LOVENOX [Suspect]
     Indication: PROPHYLAXIS
     Route: 065
     Dates: start: 20120301, end: 20120308

REACTIONS (2)
  - Dizziness [Recovered/Resolved]
  - Activities of daily living impaired [Recovered/Resolved]
